FAERS Safety Report 14912935 (Version 1)
Quarter: 2018Q2

REPORT INFORMATION
  Report Type: Spontaneous
  Country: BR (occurrence: BR)
  Receive Date: 20180518
  Receipt Date: 20180518
  Transmission Date: 20180711
  Serious: Yes (Hospitalization)
  Sender: FDA-Public Use
  Company Number: BR-BAYER-2018-092128

PATIENT
  Age: 72 Year
  Sex: Female

DRUGS (1)
  1. ASPIRINA 100 MG [Suspect]
     Active Substance: ASPIRIN
     Indication: CORONARY ARTERY DISEASE
     Dosage: 100 MG, QD
     Route: 048
     Dates: start: 20180326

REACTIONS (17)
  - Suprapubic pain [None]
  - Psychomotor hyperactivity [None]
  - Headache [None]
  - Dysphonia [None]
  - Dyspnoea exertional [None]
  - Fatigue [None]
  - Productive cough [None]
  - Urinary tract infection [None]
  - Cardiac failure congestive [None]
  - Dyspnoea at rest [None]
  - Syncope [None]
  - Delirium [None]
  - Wheezing [None]
  - Chronic obstructive pulmonary disease [None]
  - Dyspnoea paroxysmal nocturnal [None]
  - Pneumonia [None]
  - Aggression [None]

NARRATIVE: CASE EVENT DATE: 201804
